FAERS Safety Report 4791573-8 (Version None)
Quarter: 2005Q4

REPORT INFORMATION
  Report Type: 
  Country: None (occurrence: None)
  Receive Date: 20051007
  Receipt Date: 20050329
  Transmission Date: 20060501
  Serious: No
  Sender: FDA-Public Use
  Company Number: US-BRISTOL-MYERS SQUIBB COMPANY-12914107

PATIENT
  Age: 49 Year
  Sex: Female
  Weight: 113 kg

DRUGS (3)
  1. AVAPRO [Suspect]
     Indication: HYPERTENSION
     Dosage: STARTED IN 2001 OR 2002
     Route: 048
     Dates: start: 20000609, end: 20050413
  2. GLUCOVANCE [Concomitant]
  3. PROZAC [Concomitant]

REACTIONS (1)
  - EXTRASYSTOLES [None]
